FAERS Safety Report 5230524-9 (Version None)
Quarter: 2007Q1

REPORT INFORMATION
  Report Type: 
  Country: None (occurrence: None)
  Receive Date: 20070206
  Receipt Date: 20070205
  Transmission Date: 20070707
  Serious: Yes (Death, Hospitalization)
  Sender: FDA-Public Use
  Company Number: US-GLAXOSMITHKLINE-A0589917A

PATIENT
  Age: 30 Year
  Sex: Male

DRUGS (7)
  1. PAXIL [Suspect]
     Indication: DEPRESSION
     Dosage: 30MG PER DAY
     Route: 048
     Dates: start: 20010618, end: 20031022
  2. PAROXETINE HCL [Suspect]
     Indication: DEPRESSION
     Dosage: 30MG PER DAY
     Route: 048
     Dates: start: 20031022
  3. PAXIL [Suspect]
     Indication: DEPRESSIVE SYMPTOM
     Dosage: 20MG IN THE MORNING
     Route: 048
     Dates: start: 19960701, end: 19980501
  4. HYDROXYZINE [Suspect]
     Dosage: 600MG SINGLE DOSE
     Route: 048
     Dates: start: 20011220, end: 20011220
  5. ALCOHOL [Suspect]
     Route: 048
  6. MARIJUANA [Concomitant]
     Dates: start: 20011219, end: 20011219
  7. TOPROL-XL [Concomitant]
     Indication: HYPERTENSION
     Dates: start: 20011201

REACTIONS (8)
  - BIPOLAR I DISORDER [None]
  - COMPLETED SUICIDE [None]
  - HISTRIONIC PERSONALITY DISORDER [None]
  - INTENTIONAL OVERDOSE [None]
  - NARCISSISTIC PERSONALITY DISORDER [None]
  - PERSONALITY DISORDER [None]
  - SINUS TACHYCARDIA [None]
  - SUICIDE ATTEMPT [None]
